FAERS Safety Report 18386168 (Version 5)
Quarter: 2021Q2

REPORT INFORMATION
  Report Type: Spontaneous
  Country: IT (occurrence: IT)
  Receive Date: 20201015
  Receipt Date: 20210521
  Transmission Date: 20210717
  Serious: Yes (Other)
  Sender: FDA-Public Use
  Company Number: IT-PFIZER INC-2020397798

PATIENT
  Age: 38 Year
  Sex: Female
  Weight: 71 kg

DRUGS (6)
  1. CARBOPLATIN. [Suspect]
     Active Substance: CARBOPLATIN
     Indication: HER2 POSITIVE BREAST CANCER
     Dosage: 220 MG (LAST DOSE BEFORE SAE ON 28APR2020, 6 CYCLES (12 DOSES))
     Route: 042
     Dates: start: 20190831, end: 20200428
  2. ATEZOLIZUMAB. [Suspect]
     Active Substance: ATEZOLIZUMAB
     Indication: HER2 POSITIVE BREAST CANCER
     Dosage: 1200 MG EVERY 3 WEEKS (LAST DOSE BEFORE SAE ON 25AUG2020, 10 CYCLES)
     Route: 041
     Dates: start: 20191231, end: 20200825
  3. TAMOXIFEN [Concomitant]
     Active Substance: TAMOXIFEN
     Dosage: 20 MG
     Dates: start: 20200601, end: 20200824
  4. TRASTUZUMAB. [Suspect]
     Active Substance: TRASTUZUMAB
     Indication: HER2 POSITIVE BREAST CANCER
     Dosage: 426 MG (LAST DOSE BEFORE SAE ON 25AUG2020, 10 CYCLES)
     Route: 042
     Dates: start: 20191231
  5. PERTUZUMAB. [Suspect]
     Active Substance: PERTUZUMAB
     Indication: HER2 POSITIVE BREAST CANCER
     Dosage: 420 MG (LAST DOSE BEFORE SAE ON 25AUG2020, 10 CYCLES)
     Route: 042
     Dates: start: 20191231
  6. PACLITAXEL. [Suspect]
     Active Substance: PACLITAXEL
     Indication: HER2 POSITIVE BREAST CANCER
     Dosage: 160 MG (LAST DOSE BEFORE SAE ON 28APR2020, 6 CYCLES (12 DOSES))
     Route: 042
     Dates: start: 20191231, end: 20200428

REACTIONS (3)
  - Off label use [Unknown]
  - Product use in unapproved indication [Unknown]
  - Tenosynovitis [Recovered/Resolved]

NARRATIVE: CASE EVENT DATE: 20190831
